FAERS Safety Report 6115175-6 (Version None)
Quarter: 2009Q1

REPORT INFORMATION
  Report Type: 
  Country: None (occurrence: None)
  Receive Date: 20090313
  Receipt Date: 20090305
  Transmission Date: 20090719
  Serious: Yes (Other)
  Sender: FDA-Public Use
  Company Number: GB-ASTRAZENECA-2009GB00595

PATIENT
  Age: 58 Year
  Sex: Female
  Weight: 80.5 kg

DRUGS (13)
  1. OMEPRAZOLE [Suspect]
     Indication: GASTROOESOPHAGEAL REFLUX DISEASE
     Route: 048
     Dates: start: 20090205, end: 20090210
  2. AMITRIPTYLINE [Concomitant]
     Dates: start: 20081127
  3. BACLOFEN [Concomitant]
     Dates: start: 20031223
  4. BISACODYL [Concomitant]
     Dates: start: 20060407
  5. CALCICHEW D3 [Concomitant]
     Dates: start: 20030108
  6. FUROSEMIDE [Concomitant]
     Dates: start: 20060217
  7. GAVISCON [Concomitant]
     Dates: start: 20081127
  8. GLANDOSANE [Concomitant]
     Dates: start: 20081211
  9. LANSOPRAZOLE [Concomitant]
     Dates: start: 20081009
  10. LORATADINE [Concomitant]
     Dates: start: 20080715
  11. METFORMIN HCL [Concomitant]
     Dates: start: 20060427
  12. PARACETAMOL [Concomitant]
     Route: 065
     Dates: start: 20050901
  13. PREGABALIN [Concomitant]
     Dates: start: 20060505

REACTIONS (1)
  - BRONCHOSPASM [None]
